FAERS Safety Report 8165245-6 (Version None)
Quarter: 2012Q1

REPORT INFORMATION
  Report Type: 
  Country: None (occurrence: None)
  Receive Date: 20120222
  Receipt Date: 20120222
  Transmission Date: 20120608
  Serious: Yes (Life-Threatening, Other)
  Sender: FDA-Public Use
  Company Number: None

PATIENT
  Age: 17 Year
  Sex: Female
  Weight: 61.2356 kg

DRUGS (1)
  1. TRIMETHOPRIM + SULFAMETHOXAZOLE [Suspect]
     Indication: ACNE
     Dosage: 800-160 TWICE A DAY
     Dates: start: 20111220, end: 20120124

REACTIONS (5)
  - SUICIDAL IDEATION [None]
  - ANXIETY [None]
  - PRODUCT LABEL ISSUE [None]
  - DEPRESSION [None]
  - ANGER [None]
